FAERS Safety Report 20088697 (Version 1)
Quarter: 2021Q4

REPORT INFORMATION
  Report Type: Spontaneous
  Country: PL (occurrence: PL)
  Receive Date: 20211119
  Receipt Date: 20211119
  Transmission Date: 20220303
  Serious: Yes (Life-Threatening, Hospitalization, Other)
  Sender: FDA-Public Use
  Company Number: PL-Accord-245339

PATIENT
  Age: 71 Year
  Sex: Female

DRUGS (4)
  1. SPIRONOLACTONE [Suspect]
     Active Substance: SPIRONOLACTONE
     Indication: Product used for unknown indication
  2. TORSEMIDE [Concomitant]
     Active Substance: TORSEMIDE
  3. ASPIRIN [Concomitant]
     Active Substance: ASPIRIN
  4. GLICLAZIDE [Concomitant]
     Active Substance: GLICLAZIDE

REACTIONS (2)
  - Hyperkalaemia [Recovering/Resolving]
  - Cardiorenal syndrome [Unknown]
